FAERS Safety Report 6738597-9 (Version None)
Quarter: 2010Q2

REPORT INFORMATION
  Report Type: 
  Country: None (occurrence: None)
  Receive Date: 20100524
  Receipt Date: 20100517
  Transmission Date: 20101027
  Serious: Yes (Other)
  Sender: FDA-Public Use
  Company Number: JP-PFIZER INC-2010062660

PATIENT

DRUGS (1)
  1. ATARAX [Suspect]
     Dosage: 75 MG DAILY
     Route: 048

REACTIONS (1)
  - BLOOD POTASSIUM INCREASED [None]
